FAERS Safety Report 14584605 (Version 2)
Quarter: 2018Q1

REPORT INFORMATION
  Report Type: Report from Study
  Country: None (occurrence: US)
  Receive Date: 20180301
  Receipt Date: 20180307
  Transmission Date: 20180509
  Serious: Yes (Hospitalization, Other)
  Sender: FDA-Public Use
  Company Number: US-ABBVIE-17K-163-1996726-00

PATIENT
  Age: 34 Year
  Sex: Male
  Weight: 59.02 kg

DRUGS (3)
  1. HUMIRA [Suspect]
     Active Substance: ADALIMUMAB
     Indication: CROHN^S DISEASE
     Route: 058
     Dates: end: 201711
  2. HUMIRA [Suspect]
     Active Substance: ADALIMUMAB
     Route: 058
     Dates: start: 201711
  3. IRON [Concomitant]
     Active Substance: IRON
     Indication: PRODUCT USED FOR UNKNOWN INDICATION

REACTIONS (19)
  - Fistula [Recovered/Resolved]
  - Clostridium difficile infection [Recovered/Resolved]
  - Asthenia [Unknown]
  - Diarrhoea [Recovering/Resolving]
  - General physical health deterioration [Recovered/Resolved]
  - Crohn^s disease [Unknown]
  - Anal abscess [Recovered/Resolved]
  - Postoperative adhesion [Unknown]
  - Drug ineffective [Unknown]
  - Anal fistula [Recovered/Resolved]
  - Internal haemorrhage [Unknown]
  - Gait inability [Recovered/Resolved]
  - Malaise [Recovered/Resolved]
  - Anal fissure [Unknown]
  - Abdominal pain upper [Recovering/Resolving]
  - Small intestinal stenosis [Recovered/Resolved]
  - Intestinal resection [Unknown]
  - Blood iron decreased [Not Recovered/Not Resolved]
  - Procedural haemorrhage [Recovered/Resolved]

NARRATIVE: CASE EVENT DATE: 201511
